FAERS Safety Report 9204398 (Version 2)
Quarter: 2013Q2

REPORT INFORMATION
  Report Type: Spontaneous
  Country: JP (occurrence: JP)
  Receive Date: 20130402
  Receipt Date: 20130528
  Transmission Date: 20140414
  Serious: Yes (Other)
  Sender: FDA-Public Use
  Company Number: JP-PFIZER INC-2013099624

PATIENT
  Age: 77 Year
  Sex: Male

DRUGS (1)
  1. VFEND [Suspect]
     Indication: BRONCHOPULMONARY ASPERGILLOSIS
     Dosage: 150 MG, DAY
     Route: 048

REACTIONS (2)
  - Adenosquamous cell lung cancer [Recovered/Resolved]
  - Disease progression [Recovered/Resolved]
